FAERS Safety Report 14342396 (Version 1)
Quarter: 2018Q1

REPORT INFORMATION
  Report Type: Spontaneous
  Country: US (occurrence: US)
  Receive Date: 20180101
  Receipt Date: 20180101
  Transmission Date: 20180509
  Serious: No
  Sender: FDA-Public Use
  Company Number: None

PATIENT
  Age: 41 Year
  Sex: Female
  Weight: 52 kg

DRUGS (1)
  1. PARAGARD T 380A [Suspect]
     Active Substance: COPPER
     Dates: start: 20171218

REACTIONS (4)
  - Constipation [None]
  - Vaginal haemorrhage [None]
  - Vaginal discharge [None]
  - Pain [None]

NARRATIVE: CASE EVENT DATE: 20171220
